FAERS Safety Report 10615978 (Version 2)
Quarter: 2014Q4

REPORT INFORMATION
  Report Type: Spontaneous
  Country: CN (occurrence: CN)
  Receive Date: 20141201
  Receipt Date: 20141201
  Transmission Date: 20150529
  Serious: Yes (Hospitalization)
  Sender: FDA-Public Use
  Company Number: CN-JNJFOC-20141015443

PATIENT
  Age: 42 Year
  Sex: Female

DRUGS (1)
  1. SPORANOX [Suspect]
     Active Substance: ITRACONAZOLE\SODIUM CHLORIDE
     Indication: ONYCHOMYCOSIS
     Dosage: (100MG*14) 200 MG 7 DAYS PER MONTH
     Route: 048
     Dates: start: 201406, end: 201408

REACTIONS (5)
  - Blister [Recovering/Resolving]
  - Alopecia [Not Recovered/Not Resolved]
  - Dry skin [Recovering/Resolving]
  - Anaemia [Unknown]
  - Focal nodular hyperplasia [Recovered/Resolved]

NARRATIVE: CASE EVENT DATE: 20140910
